FAERS Safety Report 4404464-9 (Version None)
Quarter: 2004Q3

REPORT INFORMATION
  Report Type: 
  Country: None (occurrence: None)
  Receive Date: 20040720
  Receipt Date: 20040708
  Transmission Date: 20050211
  Serious: Yes (Hospitalization)
  Sender: FDA-Public Use
  Company Number: 163-20785-03100192 (2)

PATIENT
  Age: 69 Year
  Sex: Male

DRUGS (5)
  1. THALOMID [Suspect]
     Indication: AMYLOIDOSIS
     Dosage: 200 MG, QD, ORAL
     Route: 048
     Dates: start: 20011204
  2. THALOMID [Suspect]
     Indication: MULTIPLE MYELOMA
     Dosage: 200 MG, QD, ORAL
     Route: 048
     Dates: start: 20011204
  3. KCL(POTASSIUM CHLORIDE) [Concomitant]
  4. LASIX [Concomitant]
  5. DEXAMETHASONE [Concomitant]

REACTIONS (4)
  - DEHYDRATION [None]
  - OEDEMA PERIPHERAL [None]
  - RENAL FAILURE [None]
  - SKIN ULCER [None]
